FAERS Safety Report 4794834-1 (Version None)
Quarter: 2005Q3

REPORT INFORMATION
  Report Type: 
  Country: None (occurrence: None)
  Receive Date: 20050914
  Receipt Date: 20040903
  Transmission Date: 20060218
  Serious: Yes (Hospitalization)
  Sender: FDA-Public Use
  Company Number: 163-20785-04090121

PATIENT
  Age: 55 Year
  Sex: Male
  Weight: 59 kg

DRUGS (4)
  1. THALOMID [Suspect]
     Indication: NON-SMALL CELL LUNG CANCER
     Dosage: 200-1000MG, X 21 DAYS DAILY, ORAL
     Route: 048
     Dates: start: 20040726
  2. PACLITAXEL [Suspect]
     Indication: NON-SMALL CELL LUNG CANCER
     Dosage: 225 MG/M2, DAY 1 EVERY 21 DAYS X 2, INTRAVENOUS
     Route: 042
     Dates: start: 20040726, end: 20040816
  3. CARBOPLATIN [Suspect]
     Indication: NON-SMALL CELL LUNG CANCER
     Dosage: AUC=6, DAY 1 EVERY 21 DAYS X 2, INTRAVENOUS
     Route: 042
     Dates: start: 20040726, end: 20040816
  4. RADIATION [Suspect]
     Indication: NON-SMALL CELL LUNG CANCER
     Dosage: 60 GY OVER 6 WEEKS,  DAY 43-50

REACTIONS (2)
  - DYSPNOEA [None]
  - PNEUMONIA [None]
